FAERS Safety Report 5963888-9 (Version None)
Quarter: 2008Q4

REPORT INFORMATION
  Report Type: 
  Country: None (occurrence: None)
  Receive Date: 20081124
  Receipt Date: 20081114
  Transmission Date: 20090506
  Serious: Yes (Hospitalization, Other)
  Sender: FDA-Public Use
  Company Number: GB-ROCHE-594953

PATIENT
  Sex: Female
  Weight: 76.2 kg

DRUGS (2)
  1. CAPECITABINE [Suspect]
     Indication: COLON CANCER
     Dosage: MOST RECENTLY DOSE GIVEN ON 29 OCT 2008. STRENGTH AND FORM AS PER CODING GUIDELINES
     Route: 048
     Dates: start: 20081016, end: 20081029
  2. BEVACIZUMAB [Suspect]
     Indication: COLON CANCER
     Dosage: MOST RECENTLY DOSE GIVEN ON 29 OCT 2008. FORM: INFUSION
     Route: 042
     Dates: start: 20081016, end: 20081016

REACTIONS (9)
  - ANOREXIA [None]
  - BONE MARROW FAILURE [None]
  - DEHYDRATION [None]
  - DIARRHOEA [None]
  - DISSEMINATED INTRAVASCULAR COAGULATION [None]
  - HAEMATOCHEZIA [None]
  - MUCOSAL INFLAMMATION [None]
  - PALMAR-PLANTAR ERYTHRODYSAESTHESIA SYNDROME [None]
  - VOMITING [None]
